FAERS Safety Report 17529674 (Version 10)
Quarter: 2020Q3

REPORT INFORMATION
  Report Type: Spontaneous
  Country: AU (occurrence: AU)
  Receive Date: 20200311
  Receipt Date: 20200720
  Transmission Date: 20201102
  Serious: Yes (Hospitalization, Other)
  Sender: FDA-Public Use
  Company Number: AU-PFIZER INC-2020098578

PATIENT
  Age: 56 Year
  Sex: Male

DRUGS (1)
  1. CAVERJECT IMPULSE [Suspect]
     Active Substance: ALPROSTADIL
     Indication: ERECTILE DYSFUNCTION
     Dosage: 20 UG, AS NEEDED

REACTIONS (11)
  - Wound [Not Recovered/Not Resolved]
  - Penis injury [Not Recovered/Not Resolved]
  - Flushing [Unknown]
  - Needle issue [Unknown]
  - Post procedural complication [Unknown]
  - Sexual dysfunction [Unknown]
  - Back pain [Unknown]
  - Injury associated with device [Unknown]
  - Wound dehiscence [Unknown]
  - Nasopharyngitis [Unknown]
  - Neck pain [Unknown]

NARRATIVE: CASE EVENT DATE: 2020
